FAERS Safety Report 24434778 (Version 1)
Quarter: 2024Q4

REPORT INFORMATION
  Report Type: Report from Study
  Country: US (occurrence: US)
  Receive Date: 20241014
  Receipt Date: 20241014
  Transmission Date: 20250114
  Serious: Yes (Hospitalization, Other)
  Sender: SUNOVION
  Company Number: US-SUMITOMO PHARMA SWITZERLAND GMBH-2024SPA003509

PATIENT

DRUGS (26)
  1. ORGOVYX [Suspect]
     Active Substance: RELUGOLIX
     Indication: Prostate cancer
     Dosage: 360 MG, SINGLE
     Route: 048
     Dates: start: 20240614, end: 20240614
  2. ORGOVYX [Suspect]
     Active Substance: RELUGOLIX
     Dosage: 120 MG, QD
     Route: 048
     Dates: start: 20240615
  3. ALBUTEROL [Concomitant]
     Active Substance: ALBUTEROL
  4. ALPRAZOLAM [Concomitant]
     Active Substance: ALPRAZOLAM
  5. AMLODIPINE [Concomitant]
     Active Substance: AMLODIPINE BESYLATE
  6. ANORO ELLIPTA [Concomitant]
     Active Substance: UMECLIDINIUM BROMIDE\VILANTEROL TRIFENATATE
  7. ASPIRIN [Concomitant]
     Active Substance: ASPIRIN
  8. BICALUTAMIDE [Concomitant]
     Active Substance: BICALUTAMIDE
  9. CALCITRIOL [Concomitant]
     Active Substance: CALCITRIOL
  10. CALCIUM [Concomitant]
     Active Substance: CALCIUM
  11. CARBIDOPA AND LEVODOPA [Concomitant]
     Active Substance: CARBIDOPA\LEVODOPA
  12. CARVEDILOL [Concomitant]
     Active Substance: CARVEDILOL
  13. DOCUSATE [Concomitant]
     Active Substance: DOCUSATE
  14. FUROSEMIDE [Concomitant]
     Active Substance: FUROSEMIDE
  15. HYDRALAZINE [Concomitant]
     Active Substance: HYDRALAZINE HYDROCHLORIDE
  16. ISOSORBIDE [Concomitant]
     Active Substance: ISOSORBIDE
  17. MEMANTINE [Concomitant]
     Active Substance: MEMANTINE
  18. NITROGLYCERIN [Concomitant]
     Active Substance: NITROGLYCERIN
  19. NUEDEXTA [Concomitant]
     Active Substance: DEXTROMETHORPHAN HYDROBROMIDE\QUINIDINE SULFATE
  20. PANTOPRAZOLE [Concomitant]
     Active Substance: PANTOPRAZOLE
  21. PRAVASTATIN [Concomitant]
     Active Substance: PRAVASTATIN
  22. SERTRALINE [Concomitant]
     Active Substance: SERTRALINE HYDROCHLORIDE
  23. TAMSULOSIN [Concomitant]
     Active Substance: TAMSULOSIN
  24. TRULICITY [Concomitant]
     Active Substance: DULAGLUTIDE
  25. VITAMIN D3 [Concomitant]
     Active Substance: CHOLECALCIFEROL
  26. HYDROCODONE BITARTRATE AND ACETAMINOPHEN [Concomitant]
     Active Substance: ACETAMINOPHEN\HYDROCODONE BITARTRATE

REACTIONS (5)
  - Pulmonary oedema [Unknown]
  - Nausea [Unknown]
  - Asthenia [Unknown]
  - Heart rate decreased [Unknown]
  - Renal disorder [Unknown]
